FAERS Safety Report 8161185-7 (Version None)
Quarter: 2012Q1

REPORT INFORMATION
  Report Type: 
  Country: None (occurrence: None)
  Receive Date: 20120103
  Receipt Date: 20111118
  Transmission Date: 20120608
  Serious: No
  Sender: FDA-Public Use
  Company Number: AE-2011-003753

PATIENT
  Age: 58 Year
  Sex: Male
  Weight: 79.3795 kg

DRUGS (7)
  1. LISINOPRIL [Concomitant]
  2. LEVEMIR [Concomitant]
  3. NOVOLOG 70/30 (NOVOLOG MIX) [Concomitant]
  4. INCIVEK [Suspect]
     Dosage: 2250 MG (750 MG, 1 IN 8 HR), ORAL
     Route: 048
     Dates: start: 20111111
  5. PEGASYS [Concomitant]
  6. RIBAVIRIN [Concomitant]
  7. PAROXETINE (PRAOXETINE) [Concomitant]

REACTIONS (1)
  - DRUG DOSE OMISSION [None]
